FAERS Safety Report 9632363 (Version 3)
Quarter: 2015Q1

REPORT INFORMATION
  Report Type: Report from Study
  Country: US (occurrence: US)
  Receive Date: 20131018
  Receipt Date: 20150316
  Transmission Date: 20150721
  Serious: Yes (Other)
  Sender: FDA-Public Use
  Company Number: US-ALEXION-A201302688

PATIENT

DRUGS (2)
  1. SOLIRIS [Suspect]
     Active Substance: ECULIZUMAB
     Indication: PAROXYSMAL NOCTURNAL HAEMOGLOBINURIA
     Dosage: UNK
     Route: 042
  2. PREDNISONE. [Concomitant]
     Active Substance: PREDNISONE
     Indication: PRODUCT USED FOR UNKNOWN INDICATION
     Route: 065

REACTIONS (10)
  - Extravascular haemolysis [Unknown]
  - Cellulitis [Recovered/Resolved]
  - Pain [Unknown]
  - Arthralgia [Unknown]
  - Red blood cell sedimentation rate increased [Unknown]
  - Haemoglobin decreased [Not Recovered/Not Resolved]
  - Periarthritis [Recovered/Resolved]
  - Serum ferritin increased [Unknown]
  - Inflammation [Unknown]
  - Myalgia [Unknown]

NARRATIVE: CASE EVENT DATE: 201308
